FAERS Safety Report 4811171-7 (Version None)
Quarter: 2005Q4

REPORT INFORMATION
  Report Type: 
  Country: None (occurrence: None)
  Receive Date: 20051027
  Receipt Date: 20051019
  Transmission Date: 20060501
  Serious: Yes (Other)
  Sender: FDA-Public Use
  Company Number: PHBS2005BR15622

PATIENT
  Age: 27 Year
  Sex: Male

DRUGS (5)
  1. RITALIN [Suspect]
     Dosage: 1 TAB/D
     Route: 048
     Dates: start: 20051001, end: 20051001
  2. RIVOTRIL [Concomitant]
     Dosage: 2 MG/D
     Route: 048
     Dates: start: 20051018
  3. CATAFLAM [Concomitant]
     Dates: start: 20051018
  4. ACETAMINOPHEN [Concomitant]
     Dosage: 1 TAB/D
     Route: 048
     Dates: start: 20051019
  5. BUSCOPAN [Concomitant]
     Dates: start: 20051019

REACTIONS (2)
  - DEPRESSED LEVEL OF CONSCIOUSNESS [None]
  - FEELING DRUNK [None]
